FAERS Safety Report 15743997 (Version 2)
Quarter: 2019Q1

REPORT INFORMATION
  Report Type: Report from Study
  Country: None (occurrence: BG)
  Receive Date: 20181220
  Receipt Date: 20190122
  Transmission Date: 20190417
  Serious: Yes (Hospitalization)
  Sender: FDA-Public Use
  Company Number: BG-ABBVIE-18S-022-2592123-00

PATIENT
  Age: 69 Year
  Sex: Male

DRUGS (1)
  1. DUODOPA [Suspect]
     Active Substance: CARBIDOPA\LEVODOPA
     Indication: PARKINSON^S DISEASE
     Dosage: MD- 10.5 ML CR- 3.5 ML/H EX- 1.0 ML
     Route: 050
     Dates: start: 20171003

REACTIONS (8)
  - Hypoaesthesia [Unknown]
  - Pain [Unknown]
  - Paraesthesia [Unknown]
  - Feeling cold [Unknown]
  - Lumbosacral plexus injury [Recovered/Resolved]
  - Abdominal pain [Unknown]
  - Fatigue [Unknown]
  - Asthenia [Unknown]

NARRATIVE: CASE EVENT DATE: 20181214
